FAERS Safety Report 13784582 (Version 2)
Quarter: 2017Q3

REPORT INFORMATION
  Report Type: Spontaneous
  Country: AU (occurrence: AU)
  Receive Date: 20170725
  Receipt Date: 20170809
  Transmission Date: 20171127
  Serious: Yes (Death, Hospitalization, Other)
  Sender: FDA-Public Use
  Company Number: AU-ACTELION-A-CH2017-156838

PATIENT
  Age: 65 Year
  Sex: Female

DRUGS (2)
  1. REVATIO [Suspect]
     Active Substance: SILDENAFIL CITRATE
     Indication: PULMONARY ARTERIAL HYPERTENSION
     Dosage: 20 MG, TID
     Route: 048
     Dates: start: 20140529
  2. OPSUMIT [Suspect]
     Active Substance: MACITENTAN
     Indication: PULMONARY ARTERIAL HYPERTENSION
     Dosage: 10 MG, QD
     Route: 048
     Dates: start: 20161014, end: 20170715

REACTIONS (14)
  - Pulmonary arterial hypertension [Fatal]
  - Mobility decreased [Fatal]
  - Pneumonia aspiration [Unknown]
  - Acute kidney injury [Recovered/Resolved]
  - Oxygen saturation decreased [Fatal]
  - General physical health deterioration [Unknown]
  - Dyspnoea [Fatal]
  - Delirium [Unknown]
  - Urosepsis [Unknown]
  - Clostridium difficile infection [Unknown]
  - Fall [Unknown]
  - Urinary tract infection [Unknown]
  - Depressed level of consciousness [Unknown]
  - Chest pain [Fatal]

NARRATIVE: CASE EVENT DATE: 20170606
